FAERS Safety Report 4632992-X (Version None)
Quarter: 2005Q2

REPORT INFORMATION
  Report Type: 
  Country: None (occurrence: None)
  Receive Date: 20050325
  Receipt Date: 20050224
  Transmission Date: 20051028
  Serious: No
  Sender: FDA-Public Use
  Company Number: USA030946336

PATIENT
  Age: 78 Year
  Sex: Female

DRUGS (2)
  1. FORTEO [Suspect]
     Indication: OSTEOPOROSIS
     Dates: start: 20030101
  2. FOSAMAX [Concomitant]

REACTIONS (7)
  - BACK INJURY [None]
  - DIZZINESS [None]
  - FALL [None]
  - GAIT DISTURBANCE [None]
  - HAND FRACTURE [None]
  - LIMB INJURY [None]
  - LIMB OPERATION [None]
